FAERS Safety Report 16163984 (Version 1)
Quarter: 2019Q2

REPORT INFORMATION
  Report Type: Spontaneous
  Country: US (occurrence: US)
  Receive Date: 20190304
  Receipt Date: 20190304
  Transmission Date: 20190711
  Serious: Yes (Hospitalization)
  Sender: FDA-Public Use
  Company Number: None

PATIENT
  Age: 36 Year
  Sex: Female

DRUGS (19)
  1. AQUADEKS [Concomitant]
     Active Substance: MINERALS\VITAMINS
  2. PREVACID [Concomitant]
     Active Substance: LANSOPRAZOLE
  3. BROVANA [Concomitant]
     Active Substance: ARFORMOTEROL TARTRATE
  4. INCRUSE ELLIPTA [Concomitant]
     Active Substance: UMECLIDINIUM BROMIDE
  5. AMBIE [Concomitant]
  6. SYMDEKO [Suspect]
     Active Substance: IVACAFTOR\TEZACAFTOR
     Indication: CYSTIC FIBROSIS
     Dosage: 100/150/MG QAM, QPM, PO?
     Route: 048
     Dates: start: 20190108
  7. ALBUTEROL. [Concomitant]
     Active Substance: ALBUTEROL
  8. KEPPRA [Concomitant]
     Active Substance: LEVETIRACETAM
  9. AZITHROMYCIN ANHYDROUS. [Concomitant]
     Active Substance: AZITHROMYCIN ANHYDROUS
  10. PROTONIX [Concomitant]
     Active Substance: PANTOPRAZOLE SODIUM
  11. PULMOZYME [Concomitant]
     Active Substance: DORNASE ALFA
  12. SOD CHLORIDE [Concomitant]
  13. ZENPEP [Concomitant]
     Active Substance: PANCRELIPASE AMYLASE\PANCRELIPASE LIPASE\PANCRELIPASE PROTEASE
  14. CAYSTON [Concomitant]
     Active Substance: AZTREONAM
  15. DOXICYCLINE [Concomitant]
  16. ZOFRAN [Concomitant]
     Active Substance: ONDANSETRON HYDROCHLORIDE
  17. HUMALOG [Concomitant]
     Active Substance: INSULIN LISPRO
  18. VENTOLIN [Concomitant]
     Active Substance: ALBUTEROL SULFATE
  19. VITAMIN D3 [Concomitant]
     Active Substance: CHOLECALCIFEROL

REACTIONS (2)
  - Condition aggravated [None]
  - Cystic fibrosis [None]

NARRATIVE: CASE EVENT DATE: 20190226
